FAERS Safety Report 17578416 (Version 1)
Quarter: 2020Q1

REPORT INFORMATION
  Report Type: Spontaneous
  Country: FR (occurrence: FR)
  Receive Date: 20200324
  Receipt Date: 20200324
  Transmission Date: 20200409
  Serious: Yes (Other)
  Sender: FDA-Public Use
  Company Number: FR-GLAXOSMITHKLINE-FR2020047250

PATIENT
  Age: 61 Year
  Sex: Male
  Weight: 58 kg

DRUGS (12)
  1. CEFTRIAXONE. [Suspect]
     Active Substance: CEFTRIAXONE
     Indication: FEBRILE NEUTROPENIA
     Dosage: 2 G, QD
     Route: 042
     Dates: start: 20191206, end: 20191209
  2. METHYLPREDNISOLONE. [Suspect]
     Active Substance: METHYLPREDNISOLONE
     Indication: PRODUCT USED FOR UNKNOWN INDICATION
     Dosage: 40 MG, QD
     Route: 037
     Dates: start: 20191128, end: 20191128
  3. METHOTREXATE. [Suspect]
     Active Substance: METHOTREXATE
     Indication: ACUTE MYELOID LEUKAEMIA
     Dosage: 15 MG, SINGLE, IN TOTAL
     Route: 042
     Dates: start: 20191128, end: 20191128
  4. CYTARABINE. [Suspect]
     Active Substance: CYTARABINE
     Indication: ACUTE MYELOID LEUKAEMIA
     Dosage: 170 MG, QD
     Route: 042
     Dates: start: 20191128, end: 20191205
  5. DEXAMETHASONE. [Suspect]
     Active Substance: DEXAMETHASONE
     Indication: ACUTE MYELOID LEUKAEMIA
     Dosage: 20 MG, QD
     Route: 048
     Dates: start: 20191129, end: 20191201
  6. VALACICLOVIR [Suspect]
     Active Substance: VALACYCLOVIR HYDROCHLORIDE
     Indication: INFECTION
     Dosage: 1000 MG, QD
     Route: 048
     Dates: start: 20191130, end: 20191209
  7. IDARUBICINE [Suspect]
     Active Substance: IDARUBICIN
     Indication: ACUTE MYELOID LEUKAEMIA
     Dosage: 13.6 MG, QD
     Route: 042
     Dates: start: 20191129, end: 20191203
  8. BELUSTINE [Suspect]
     Active Substance: LOMUSTINE
     Indication: ACUTE MYELOID LEUKAEMIA
     Dosage: 320 MG, SINGLE, IN TOTAL
     Route: 048
     Dates: start: 20191129, end: 20191129
  9. AMIKACINE [Suspect]
     Active Substance: AMIKACIN
     Indication: INFECTION
     Dosage: 750 MG, QD
     Route: 042
     Dates: start: 20191207, end: 20191211
  10. ZOPHREN [Suspect]
     Active Substance: ONDANSETRON
     Indication: PROPHYLAXIS OF NAUSEA AND VOMITING
     Dosage: 8 MG, QD
     Route: 042
     Dates: start: 20191129, end: 20191208
  11. FILGRASTIM [Suspect]
     Active Substance: FILGRASTIM
     Indication: PROPHYLAXIS
     Dosage: 30 MILLION IU, QD
     Route: 058
     Dates: start: 20191206, end: 20191209
  12. FUSIDIC ACID [Suspect]
     Active Substance: FUSIDIC ACID
     Indication: FOLLICULITIS
     Dosage: 2 DF, QD
     Route: 003
     Dates: start: 20191206, end: 20191208

REACTIONS (1)
  - Toxic skin eruption [Recovered/Resolved]

NARRATIVE: CASE EVENT DATE: 20191207
